FAERS Safety Report 5332510-7 (Version None)
Quarter: 2007Q2

REPORT INFORMATION
  Report Type: 
  Country: None (occurrence: None)
  Receive Date: 20070523
  Receipt Date: 20070517
  Transmission Date: 20071010
  Serious: Yes (Death)
  Sender: FDA-Public Use
  Company Number: JP-ASTRAZENECA-2007AP02830

PATIENT
  Age: 86 Year
  Sex: Male

DRUGS (10)
  1. CRESTOR [Suspect]
     Indication: BLOOD CHOLESTEROL INCREASED
     Route: 048
     Dates: start: 20070312
  2. ASPIRIN [Concomitant]
     Route: 048
     Dates: start: 20070312, end: 20070320
  3. TICLOPIDINE HCL [Concomitant]
     Route: 048
     Dates: start: 20070312, end: 20070320
  4. ARTIST [Concomitant]
     Route: 048
     Dates: start: 20070312, end: 20070320
  5. HARNAL [Concomitant]
     Indication: BENIGN PROSTATIC HYPERPLASIA
     Route: 048
  6. ERYTHROMYCIN [Concomitant]
  7. TELESMIIN [Concomitant]
     Route: 048
  8. CYLMIN [Concomitant]
     Route: 048
  9. TUROBRIN [Concomitant]
     Route: 048
  10. MUCOSOLATE [Concomitant]
     Route: 048

REACTIONS (2)
  - EMPHYSEMA [None]
  - PNEUMONIA [None]
